FAERS Safety Report 4678194-2 (Version None)
Quarter: 2005Q2

REPORT INFORMATION
  Report Type: 
  Country: None (occurrence: None)
  Receive Date: 20050527
  Receipt Date: 20050517
  Transmission Date: 20051028
  Serious: Yes (Other)
  Sender: FDA-Public Use
  Company Number: 214564

PATIENT
  Age: 60 Year
  Sex: Female
  Weight: 52 kg

DRUGS (7)
  1. RITUXAN [Suspect]
     Indication: NON-HODGKIN'S LYMPHOMA
     Dosage: 570MG
     Dates: start: 20020122, end: 20020402
  2. ETOPOSIDE [Suspect]
     Indication: NON-HODGKIN'S LYMPHOMA
     Dosage: 150 MG/200 MG
     Dates: start: 20020123, end: 20020407
  3. NOVANTRON (MITOXANTRONE HYDROCHLORIDE) [Suspect]
     Indication: NON-HODGKIN'S LYMPHOMA
     Dosage: 10 MG
     Dates: start: 20020123, end: 20020407
  4. FILDESIN(VINDESINE SULFATE) [Suspect]
     Indication: NON-HODGKIN'S LYMPHOMA
     Dosage: 3 MG, INTRAVENOUS
     Route: 042
     Dates: start: 20020123, end: 20020407
  5. PREDONINE(PREDNISOLONE SODIUM SUCCINATE, PREDNISOLONE ACETATE, PREDNIS [Suspect]
     Indication: NON-HODGKIN'S LYMPHOMA
     Dosage: 25 MG, ORAL
     Route: 048
     Dates: start: 20020123, end: 20020407
  6. LOXONIN(LOXOPROFEN SODIUM) [Concomitant]
  7. POLARAMINE [Concomitant]

REACTIONS (1)
  - PANCYTOPENIA [None]
